FAERS Safety Report 8770749 (Version 2)
Quarter: 2012Q4

REPORT INFORMATION
  Report Type: 
  Country: US (occurrence: US)
  Receive Date: 20120906
  Receipt Date: 20121003
  Transmission Date: 20130627
  Serious: Yes (Other)
  Sender: FDA-Public Use
  Company Number: US-CELGENEUS-163-21880-12083462

PATIENT
  Sex: Female
  Weight: 72.19 kg

DRUGS (11)
  1. REVLIMID [Suspect]
     Indication: MULTIPLE MYELOMA
     Dosage: 25 Milligram
     Route: 048
     Dates: start: 201205
  2. REVLIMID [Suspect]
     Dosage: 15 Milligram
     Route: 048
     Dates: start: 20120807, end: 201209
  3. TRAMADOL [Suspect]
     Indication: DRUG USE FOR UNKNOWN INDICATION
     Dosage: 50
     Route: 065
  4. ACYCLOVIR [Suspect]
     Indication: HERPES NOS
     Dosage: 800 Milligram
     Route: 065
  5. ZOMETA [Concomitant]
     Indication: MULTIPLE MYELOMA
     Route: 065
  6. DECADRON [Concomitant]
     Indication: MULTIPLE MYELOMA
     Route: 065
  7. HCTZ [Concomitant]
     Indication: HYPERTENSION
     Dosage: 25 Milligram
     Route: 065
  8. LISINOPRIL [Concomitant]
     Indication: HYPERTENSION
     Dosage: 5 Milligram
     Route: 065
  9. DESYREL [Concomitant]
     Indication: SLEEP DISORDER
     Dosage: 50 Milligram
     Route: 065
  10. ATIVAN [Concomitant]
     Indication: ANXIETY
     Dosage: .5 Milligram
     Route: 065
  11. CURCUMIN [Concomitant]
     Indication: DRUG USE FOR UNKNOWN INDICATION
     Dosage: 8 Gram
     Route: 065

REACTIONS (2)
  - Hepatic enzyme increased [Recovered/Resolved]
  - Cognitive disorder [Recovered/Resolved]
